FAERS Safety Report 21087329 (Version 2)
Quarter: 2022Q3

REPORT INFORMATION
  Report Type: Spontaneous
  Country: DK (occurrence: DK)
  Receive Date: 20220715
  Receipt Date: 20220819
  Transmission Date: 20221027
  Serious: Yes (Hospitalization)
  Sender: FDA-Public Use
  Company Number: DK-MYLANLABS-2022M1078121

PATIENT
  Age: 82 Year
  Sex: Female
  Weight: 70 kg

DRUGS (1)
  1. LIDOCAINE [Suspect]
     Active Substance: LIDOCAINE
     Indication: Local anaesthesia
     Dosage: 2400 MILLIGRAM
     Route: 058
     Dates: start: 20210604

REACTIONS (4)
  - Accidental overdose [Recovered/Resolved]
  - Local anaesthetic systemic toxicity [Recovered/Resolved]
  - Product administration error [Recovered/Resolved]
  - Product communication issue [Recovered/Resolved]
